FAERS Safety Report 18437868 (Version 3)
Quarter: 2020Q4

REPORT INFORMATION
  Report Type: Report from Study
  Country: KR (occurrence: KR)
  Receive Date: 20201028
  Receipt Date: 20201118
  Transmission Date: 20210114
  Serious: Yes (Hospitalization)
  Sender: FDA-Public Use
  Company Number: NVSC2020KR283241

PATIENT
  Age: 59 Year
  Sex: Female
  Weight: 54 kg

DRUGS (1)
  1. CERITINIB [Suspect]
     Active Substance: CERITINIB
     Indication: MALIGNANT MELANOMA
     Dosage: 600 MG, QD
     Route: 048
     Dates: start: 20130129, end: 20201012

REACTIONS (1)
  - Pneumonia [Recovering/Resolving]

NARRATIVE: CASE EVENT DATE: 20201016
